FAERS Safety Report 6311434-2 (Version None)
Quarter: 2009Q3

REPORT INFORMATION
  Report Type: 
  Country: None (occurrence: None)
  Receive Date: 20090817
  Receipt Date: 20090805
  Transmission Date: 20100115
  Serious: Yes (Hospitalization)
  Sender: FDA-Public Use
  Company Number: AU-PFIZER INC-2009250294

PATIENT
  Age: 31 Year

DRUGS (2)
  1. SYNAREL [Suspect]
     Dosage: UNK
  2. PUREGON [Suspect]
     Indication: INFERTILITY

REACTIONS (1)
  - PANCREATITIS ACUTE [None]
